FAERS Safety Report 14452735 (Version 1)
Quarter: 2018Q1

REPORT INFORMATION
  Report Type: Spontaneous
  Country: US (occurrence: US)
  Receive Date: 20180126
  Receipt Date: 20180126
  Transmission Date: 20180509
  Serious: Yes (Other)
  Sender: FDA-Public Use
  Company Number: None

PATIENT
  Age: 59 Year
  Sex: Female

DRUGS (15)
  1. CALCIUM [Concomitant]
     Active Substance: CALCIUM
  2. CYANOCOBALAM [Concomitant]
  3. LEVOTHYROXIN [Concomitant]
     Active Substance: LEVOTHYROXINE
  4. BUPROPION. [Concomitant]
     Active Substance: BUPROPION
  5. MULTIVITAMIN [Concomitant]
     Active Substance: VITAMINS
  6. NAPROXEN. [Concomitant]
     Active Substance: NAPROXEN
  7. HUMIRA [Suspect]
     Active Substance: ADALIMUMAB
     Indication: CROHN^S DISEASE
     Route: 058
     Dates: start: 20170801
  8. CHANTIX [Concomitant]
     Active Substance: VARENICLINE TARTRATE
  9. OLANZA/FLUOX [Concomitant]
  10. ALPRAZOLAM. [Concomitant]
     Active Substance: ALPRAZOLAM
  11. APRISO [Concomitant]
     Active Substance: MESALAMINE
  12. IRON [Concomitant]
     Active Substance: IRON
  13. SYMBYAX [Concomitant]
     Active Substance: FLUOXETINE HYDROCHLORIDE\OLANZAPINE
  14. VITAMIN D3 [Concomitant]
     Active Substance: CHOLECALCIFEROL
  15. PRAVASTATIN. [Concomitant]
     Active Substance: PRAVASTATIN

REACTIONS (1)
  - Depression [None]

NARRATIVE: CASE EVENT DATE: 20171226
